FAERS Safety Report 7589628-8 (Version None)
Quarter: 2011Q3

REPORT INFORMATION
  Report Type: 
  Country: None (occurrence: None)
  Receive Date: 20110705
  Receipt Date: 20110628
  Transmission Date: 20111222
  Serious: Yes (Other)
  Sender: FDA-Public Use
  Company Number: US-PFIZER INC-2011146095

PATIENT
  Sex: Male

DRUGS (1)
  1. DILANTIN [Suspect]
     Dosage: 100 MG IN THE MORNING, 30 MG IN THE AFTERNOON, AND 100 MG AT NIGHT

REACTIONS (2)
  - DYSPHAGIA [None]
  - CONVULSION [None]
